FAERS Safety Report 11043562 (Version 1)
Quarter: 2015Q2

REPORT INFORMATION
  Report Type: Spontaneous
  Country: US (occurrence: None)
  Receive Date: 20150416
  Receipt Date: 20150416
  Transmission Date: 20150821
  Serious: Yes (Other)
  Sender: FDA-Public Use
  Company Number: None

PATIENT
  Age: 25 Year
  Sex: Female
  Weight: 63.5 kg

DRUGS (2)
  1. MEFLOQUINE [Suspect]
     Active Substance: MEFLOQUINE
     Indication: MALARIA
     Dosage: TAKEN BY MOUTH
     Route: 048
     Dates: start: 20140723, end: 20140806
  2. LO-ESTRIN BIRTH CONTROL [Concomitant]

REACTIONS (2)
  - Depersonalisation [None]
  - Anxiety [None]

NARRATIVE: CASE EVENT DATE: 20140811
